FAERS Safety Report 9158106 (Version 2)
Quarter: 2015Q3

REPORT INFORMATION
  Report Type: Spontaneous
  Country: CA (occurrence: CA)
  Receive Date: 20130312
  Receipt Date: 20150817
  Transmission Date: 20151125
  Serious: Yes (Hospitalization)
  Sender: FDA-Public Use
  Company Number: CA-ROCHE-GNE308510

PATIENT
  Age: 15 Year
  Sex: Female
  Weight: 78 kg

DRUGS (9)
  1. CONCERTA [Concomitant]
     Active Substance: METHYLPHENIDATE HYDROCHLORIDE
  2. CORTISONE [Concomitant]
     Active Substance: CORTISONE\HYDROCORTISONE
     Route: 065
     Dates: start: 20140423, end: 20140427
  3. XOLAIR [Suspect]
     Active Substance: OMALIZUMAB
     Indication: ASTHMA
     Route: 058
     Dates: start: 20100309
  4. XOLAIR [Suspect]
     Active Substance: OMALIZUMAB
     Route: 058
     Dates: start: 20130219
  5. XOLAIR [Suspect]
     Active Substance: OMALIZUMAB
     Route: 058
     Dates: start: 20120904
  6. XOLAIR [Suspect]
     Active Substance: OMALIZUMAB
     Route: 058
     Dates: start: 20141205
  7. PULMICORT TURBUHALER [Concomitant]
     Active Substance: BUDESONIDE
  8. CLARITIN [Concomitant]
     Active Substance: LORATADINE
  9. DOXEPIN [Concomitant]
     Active Substance: DOXEPIN
     Route: 065
     Dates: start: 20140423

REACTIONS (12)
  - Multiple allergies [Recovered/Resolved]
  - Weight increased [Not Recovered/Not Resolved]
  - Urticaria [Recovered/Resolved]
  - Bronchitis viral [Unknown]
  - Attention deficit/hyperactivity disorder [Recovered/Resolved]
  - Respiratory disorder [Unknown]
  - Nasopharyngitis [Recovered/Resolved]
  - Asthma [Unknown]
  - Atelectasis [Recovered/Resolved]
  - Rhinitis allergic [Recovered/Resolved]
  - Heart rate increased [Unknown]
  - Asthma [Recovered/Resolved]

NARRATIVE: CASE EVENT DATE: 20130203
